FAERS Safety Report 21433249 (Version 2)
Quarter: 2025Q2

REPORT INFORMATION
  Report Type: Spontaneous
  Country: US (occurrence: US)
  Receive Date: 20221010
  Receipt Date: 20250606
  Transmission Date: 20250717
  Serious: Yes (Other)
  Sender: PURDUE
  Company Number: US-PURDUE-USA-2021-0272032

PATIENT
  Sex: Male

DRUGS (2)
  1. DILAUDID [Suspect]
     Active Substance: HYDROMORPHONE HYDROCHLORIDE
     Indication: Product used for unknown indication
     Route: 048
  2. MS CONTIN [Suspect]
     Active Substance: MORPHINE SULFATE
     Indication: Product used for unknown indication
     Route: 048

REACTIONS (7)
  - Drug dependence [Unknown]
  - General physical health deterioration [Unknown]
  - Mental disorder [Unknown]
  - Anxiety [Unknown]
  - Impaired quality of life [Unknown]
  - Depression [Unknown]
  - Confusional state [Unknown]
